FAERS Safety Report 17075969 (Version 4)
Quarter: 2020Q2

REPORT INFORMATION
  Report Type: Spontaneous
  Country: US (occurrence: US)
  Receive Date: 20191126
  Receipt Date: 20200529
  Transmission Date: 20200713
  Serious: Yes (Other)
  Sender: FDA-Public Use
  Company Number: US-GILEAD-2019-0439507

PATIENT
  Age: 42 Year
  Sex: Male
  Weight: 109.3 kg

DRUGS (47)
  1. DICYCLOMINE [DICYCLOVERINE HYDROCHLORIDE] [Concomitant]
  2. HYDROXYZINE PAM [Concomitant]
     Active Substance: HYDROXYZINE PAMOATE
  3. SODIUM CHLORIDE. [Concomitant]
     Active Substance: SODIUM CHLORIDE
  4. PROCRIT [Concomitant]
     Active Substance: ERYTHROPOIETIN
  5. PEPCID [Concomitant]
     Active Substance: FAMOTIDINE
  6. AMOXICILLIN. [Concomitant]
     Active Substance: AMOXICILLIN
  7. NORMAL SALINE [Concomitant]
     Active Substance: SODIUM CHLORIDE
  8. METFORMIN [Concomitant]
     Active Substance: METFORMIN HYDROCHLORIDE
  9. PROAIR HFA [Concomitant]
     Active Substance: ALBUTEROL SULFATE
  10. MUPIROCIN. [Concomitant]
     Active Substance: MUPIROCIN
  11. JANUVIA [Concomitant]
     Active Substance: SITAGLIPTIN PHOSPHATE
  12. FUROSEMIDE. [Concomitant]
     Active Substance: FUROSEMIDE
  13. HEPARIN [Concomitant]
     Active Substance: HEPARIN SODIUM
  14. POLYMYXIN B -TRIMETHOPRIM OPHTHA. [Concomitant]
  15. DEXTROSE WATER [Concomitant]
  16. PREDNISONE. [Concomitant]
     Active Substance: PREDNISONE
  17. INFLUENZA VACCINE [Concomitant]
     Active Substance: INFLUENZA VIRUS VACCINE
  18. DDAVP [Concomitant]
     Active Substance: DESMOPRESSIN ACETATE
  19. COLACE [Concomitant]
     Active Substance: DOCUSATE SODIUM
  20. MAALOX ADVANCED [CALCIUM CARBONATE;SIMETICONE] [Concomitant]
  21. TRUVADA [Suspect]
     Active Substance: EMTRICITABINE\TENOFOVIR DISOPROXIL FUMARATE
     Indication: PROPHYLAXIS AGAINST HIV INFECTION
     Dosage: 200-300 MG, QD
     Route: 048
     Dates: start: 20170317, end: 20190520
  22. GLIMEPIRIDE. [Concomitant]
     Active Substance: GLIMEPIRIDE
  23. AMLODIPINE BESYLATE. [Concomitant]
     Active Substance: AMLODIPINE BESYLATE
  24. ERYTHROMYCIN. [Concomitant]
     Active Substance: ERYTHROMYCIN
  25. VENLAFAXINE [Concomitant]
     Active Substance: VENLAFAXINE HYDROCHLORIDE
  26. FLUVIRIN [INFLUENZA VACCINE INACT SAG 3V] [Concomitant]
  27. ONDANSETRON [Concomitant]
     Active Substance: ONDANSETRON
  28. DOXYCYCLINE HYCLATE. [Concomitant]
     Active Substance: DOXYCYCLINE HYCLATE
  29. TRAZODONE [Concomitant]
     Active Substance: TRAZODONE HYDROCHLORIDE
  30. LAMOTRIGINE. [Concomitant]
     Active Substance: LAMOTRIGINE
  31. ATORVASTATIN [Concomitant]
     Active Substance: ATORVASTATIN
  32. CEPHALEXIN [CEFALEXIN] [Concomitant]
     Active Substance: CEPHALEXIN
  33. GLIPIZIDE. [Concomitant]
     Active Substance: GLIPIZIDE
  34. OSELTAMIVIR [Concomitant]
     Active Substance: OSELTAMIVIR
  35. BUSPIRONE [Concomitant]
     Active Substance: BUSPIRONE HYDROCHLORIDE
  36. LANTUS [Concomitant]
     Active Substance: INSULIN GLARGINE
  37. LATUDA [Concomitant]
     Active Substance: LURASIDONE HYDROCHLORIDE
  38. MILK OF MAGNESIA [Concomitant]
     Active Substance: MAGNESIUM HYDROXIDE
  39. CEPHALEXIN [CEFALEXIN] [Concomitant]
     Active Substance: CEPHALEXIN
  40. ALLOPURINOL. [Concomitant]
     Active Substance: ALLOPURINOL
  41. VIRTUSSIN AC [Concomitant]
     Active Substance: CODEINE PHOSPHATE\GUAIFENESIN
  42. HUMALOG [Concomitant]
     Active Substance: INSULIN LISPRO
  43. AZITHROMYCIN ANHYDROUS. [Concomitant]
     Active Substance: AZITHROMYCIN ANHYDROUS
  44. BETAMETHASONE. [Concomitant]
     Active Substance: BETAMETHASONE
  45. TYLENOL [Concomitant]
     Active Substance: ACETAMINOPHEN
  46. HYDRALAZINE [Concomitant]
     Active Substance: HYDRALAZINE HYDROCHLORIDE
  47. CLOTRIMAZOLE. [Concomitant]
     Active Substance: CLOTRIMAZOLE

REACTIONS (9)
  - Anhedonia [Unknown]
  - Chronic kidney disease [Not Recovered/Not Resolved]
  - Economic problem [Unknown]
  - Pain [Unknown]
  - Anxiety [Unknown]
  - Tubulointerstitial nephritis [Not Recovered/Not Resolved]
  - Acute kidney injury [Not Recovered/Not Resolved]
  - Renal failure [Unknown]
  - Emotional distress [Unknown]

NARRATIVE: CASE EVENT DATE: 20190212
